FAERS Safety Report 14722237 (Version 1)
Quarter: 2018Q2

REPORT INFORMATION
  Report Type: Spontaneous
  Country: CN (occurrence: CN)
  Receive Date: 20180405
  Receipt Date: 20180405
  Transmission Date: 20180711
  Serious: Yes (Other)
  Sender: FDA-Public Use
  Company Number: IND-CN-009507513-1803CHN011809

PATIENT

DRUGS (1)
  1. ANDRIOL TESTOCAPS [Suspect]
     Active Substance: TESTOSTERONE UNDECANOATE
     Indication: APLASTIC ANAEMIA
     Route: 048

REACTIONS (2)
  - Product use in unapproved indication [Unknown]
  - Intracranial venous sinus thrombosis [Unknown]
